FAERS Safety Report 18534142 (Version 6)
Quarter: 2021Q3

REPORT INFORMATION
  Report Type: Spontaneous
  Country: US (occurrence: US)
  Receive Date: 20201123
  Receipt Date: 20210802
  Transmission Date: 20211014
  Serious: Yes (Death, Hospitalization, Other)
  Sender: FDA-Public Use
  Company Number: US-TEVA-2020-US-1851890

PATIENT
  Age: 59 Year
  Sex: Male

DRUGS (39)
  1. TYLENOL [Concomitant]
     Active Substance: ACETAMINOPHEN
     Indication: PAIN
     Dosage: DOSAGE: 200 MG AS NEEDED
     Dates: end: 20171127
  2. ZANTAC [Concomitant]
     Active Substance: RANITIDINE HYDROCHLORIDE
     Indication: GASTROOESOPHAGEAL REFLUX DISEASE
     Dosage: DOSAGE: 150MG AS NEEDED
     Dates: start: 1980, end: 20171127
  3. TEMOVATE [Concomitant]
     Active Substance: CLOBETASOL PROPIONATE
     Indication: RASH
     Dosage: 0.05 PERCENT APPLY TOPICALLY 2 (TWO) TIMES A DAY AS NEEDED
     Dates: start: 20170413
  4. ZYRTEC [Concomitant]
     Active Substance: CETIRIZINE HYDROCHLORIDE
     Indication: PRURITUS
     Dosage: 10 MILLIGRAM DAILY;
     Route: 048
     Dates: start: 20170414, end: 20171120
  5. LASIX [Concomitant]
     Active Substance: FUROSEMIDE
     Indication: OEDEMA
     Dosage: 40MG DAILY
     Route: 048
     Dates: start: 20170420
  6. ALLOPURINOL. [Concomitant]
     Active Substance: ALLOPURINOL
     Indication: GASTROOESOPHAGEAL REFLUX DISEASE
     Dosage: DOSAGE: 300 MG ONCE A DAY
     Dates: start: 2007, end: 20171127
  7. NEXIUM [Concomitant]
     Active Substance: ESOMEPRAZOLE MAGNESIUM
     Indication: GASTROOESOPHAGEAL REFLUX DISEASE
     Dosage: DOSAGE: 40 MG ONCE A DAY
     Dates: start: 2010, end: 20171127
  8. FUROSEMIDE. [Concomitant]
     Active Substance: FUROSEMIDE
     Indication: LIVER DISORDER
  9. DIOVAN [Concomitant]
     Active Substance: VALSARTAN
     Indication: HYPERTENSION
     Dosage: DOSAGE: 320 MG ONCE A DAY
     Dates: start: 2002, end: 2016
  10. FISH OIL [Concomitant]
     Active Substance: FISH OIL
     Indication: CARDIAC DISORDER
     Dosage: DOSAGE: 1,000 MG ONCE A DAY
     Dates: end: 20171127
  11. LIPITOR [Concomitant]
     Active Substance: ATORVASTATIN CALCIUM
     Dosage: 20 MILLIGRAM DAILY;
     Route: 048
  12. CRESTOR [Concomitant]
     Active Substance: ROSUVASTATIN CALCIUM
     Dosage: 10 MILLIGRAM DAILY; BY MOUTH NIGHTLY
     Route: 048
     Dates: start: 20170420
  13. GLUCOPHAGE [Concomitant]
     Active Substance: METFORMIN HYDROCHLORIDE
     Dosage: 750 MILLIGRAM DAILY;
     Route: 048
     Dates: start: 20170728
  14. GABAPENTIN. [Concomitant]
     Active Substance: GABAPENTIN
     Indication: CEREBROVASCULAR ACCIDENT
     Dosage: DOSAGE: 100 MG ONCE A DAY
     Dates: start: 2007, end: 20171127
  15. FUROSEMIDE. [Concomitant]
     Active Substance: FUROSEMIDE
     Indication: RENAL DISORDER
     Dosage: DOSAGE: 80 MG ONCE A DAY.
     Dates: start: 2017, end: 20171127
  16. METFORMIN [Concomitant]
     Active Substance: METFORMIN HYDROCHLORIDE
     Indication: DIABETES MELLITUS
     Dosage: DOSAGE: 750 MG ONCE A DAY
     Dates: start: 2004, end: 20171127
  17. NORCO [Concomitant]
     Active Substance: ACETAMINOPHEN\HYDROCODONE BITARTRATE
     Indication: PAIN
     Dosage: 5?325 MG PER TABLET 1?2 BY MOUTH EVERY 4?6 HOURS WHEN NECESSARY
     Dates: start: 20171114
  18. REGLAN [Concomitant]
     Active Substance: METOCLOPRAMIDE HYDROCHLORIDE
     Dosage: 20 MILLIGRAM DAILY;
     Route: 048
     Dates: start: 20171103
  19. PLAVIX [Concomitant]
     Active Substance: CLOPIDOGREL BISULFATE
     Indication: CEREBROVASCULAR ACCIDENT
     Dates: start: 2007, end: 20081127
  20. COLCHICINE. [Concomitant]
     Active Substance: COLCHICINE
     Indication: GOUT
     Dosage: 12 MILLIGRAM DAILY; PRN
     Route: 048
  21. MAG?OX [Concomitant]
     Active Substance: MAGNESIUM OXIDE
     Dosage: 400 MILLIGRAM DAILY;
     Route: 048
     Dates: start: 20170420
  22. SINGULAIR [Concomitant]
     Active Substance: MONTELUKAST SODIUM
     Dosage: 10 MILLIGRAM DAILY;
     Route: 048
  23. PHENERGAN [Concomitant]
     Active Substance: PROMETHAZINE HYDROCHLORIDE
     Indication: VOMITING
  24. GLIMEPIRIDE. [Concomitant]
     Active Substance: GLIMEPIRIDE
     Indication: DIABETES MELLITUS
     Dosage: DOSAGE: 4 MG ONCE A DAY
     Dates: start: 2004, end: 20171127
  25. PHENERGAN [Concomitant]
     Active Substance: PROMETHAZINE HYDROCHLORIDE
     Indication: NAUSEA
     Dosage: 25MG EVERY 6 HOURS
     Route: 048
     Dates: start: 20170124, end: 20171103
  26. VALSARTAN/HYDROCHLOROTHIAZIDE SOLCO [Suspect]
     Active Substance: HYDROCHLOROTHIAZIDE\VALSARTAN
     Indication: HYPERTENSION
     Dosage: DOSAGE: 320 MG/12.5MG
     Route: 048
     Dates: start: 20161029, end: 20171127
  27. KLOR?CON [Concomitant]
     Active Substance: POTASSIUM CHLORIDE
     Indication: RENAL DISORDER
     Dosage: DOSAGE: 20 MEQ TABLET ONCE A DAY.
     Dates: start: 2008, end: 20171127
  28. VISTARIL [Concomitant]
     Active Substance: HYDROXYZINE PAMOATE
     Indication: PRURITUS
     Dosage: 25?50MG 3 TIMES A DAY
     Route: 048
     Dates: start: 20170215, end: 20171120
  29. DIOVAN HCT [Suspect]
     Active Substance: HYDROCHLOROTHIAZIDE\VALSARTAN
     Route: 048
     Dates: start: 20121203
  30. OMEPRAZOLE. [Concomitant]
     Active Substance: OMEPRAZOLE
     Indication: GASTROOESOPHAGEAL REFLUX DISEASE
     Dosage: DOSAGE: 20MG ONCE A DAY
     Dates: start: 2007, end: 2010
  31. SIMVASTATIN. [Concomitant]
     Active Substance: SIMVASTATIN
     Indication: BLOOD CHOLESTEROL INCREASED
     Dosage: DOSAGE: 20 MG ONCE A DAY.
     Dates: start: 2007, end: 20171127
  32. KLOR?CON [Concomitant]
     Active Substance: POTASSIUM CHLORIDE
     Indication: LIVER DISORDER
  33. DEPO?MEDROL [Concomitant]
     Active Substance: METHYLPREDNISOLONE ACETATE
     Dates: start: 20170928, end: 20170928
  34. TESTOSTERONE CIPIONATE [Concomitant]
     Active Substance: TESTOSTERONE
     Dosage: 200MG/ML INJECTION INTO THE MUSCLE EVERY 14 DAYS
     Dates: start: 20170829
  35. VALSARTAN W/HYDROCHLOROTHIAZIDE ACTAVIS [Suspect]
     Active Substance: HYDROCHLOROTHIAZIDE\VALSARTAN
     Indication: HYPERTENSION
     Dosage: DOSAGE: 320 MG/12.5MG
     Route: 048
     Dates: start: 20130603, end: 20161004
  36. VALSARTAN/HYDROCHLOROTHIAZIDE SANDOZ [Suspect]
     Active Substance: HYDROCHLOROTHIAZIDE\VALSARTAN
     Indication: HYPERTENSION
     Dosage: DOSAGE: 320 MG/12.5MG
     Route: 048
     Dates: start: 20161029, end: 20171127
  37. VALSARTAN/HYDROCHLOROTHIAZIDE INGENUS PHARMACEUTICALS [Suspect]
     Active Substance: HYDROCHLOROTHIAZIDE\VALSARTAN
     Indication: HYPERTENSION
     Dosage: DOSAGE: 320 MG/12.5MG?VALSARTAN/HYDROCHLOROTHIAZIDE INGENUS PHARMACEUTICALS
     Route: 048
     Dates: start: 20161029, end: 20171127
  38. FLONASE [Concomitant]
     Active Substance: FLUTICASONE PROPIONATE
     Dosage: 50 MCG/ACTUTATION
     Dates: start: 20170110
  39. BACTRIM DS [Concomitant]
     Active Substance: SULFAMETHOXAZOLE\TRIMETHOPRIM
     Dosage: 800?160 MG PER TABLET TAKE 1 TAB BY MOUTH DAILY
     Route: 048
     Dates: start: 20171027

REACTIONS (3)
  - Hepatic cancer [Not Recovered/Not Resolved]
  - Colon cancer [Not Recovered/Not Resolved]
  - Pancreatic carcinoma [Not Recovered/Not Resolved]
